FAERS Safety Report 25919993 (Version 1)
Quarter: 2025Q4

REPORT INFORMATION
  Report Type: Spontaneous
  Country: US (occurrence: None)
  Receive Date: 20251010
  Receipt Date: 20251010
  Transmission Date: 20260118
  Serious: Yes (Death)
  Sender: FDA-CTU
  Company Number: None

PATIENT
  Sex: Male

DRUGS (4)
  1. WINREVAIR [Suspect]
     Active Substance: SOTATERCEPT-CSRK
     Indication: Pulmonary arterial hypertension
     Dosage: 1 MG EVERY 3 WEEKS SUBCUTANEOUS?
     Route: 058
     Dates: start: 20250311
  2. REMODULIN [Concomitant]
     Active Substance: TREPROSTINIL
  3. STERILE DILUENT FOR REMODULIN [Concomitant]
     Active Substance: WATER
  4. TREPROSTINIL DIOLAMINE [Concomitant]
     Active Substance: TREPROSTINIL DIOLAMINE

REACTIONS (1)
  - Death [None]
